FAERS Safety Report 6341121-6 (Version None)
Quarter: 2009Q3

REPORT INFORMATION
  Report Type: 
  Country: None (occurrence: None)
  Receive Date: 20090904
  Receipt Date: 20090515
  Transmission Date: 20100115
  Serious: No
  Sender: FDA-Public Use
  Company Number: A0741132A

PATIENT
  Age: 52 Year
  Sex: Female
  Weight: 75 kg

DRUGS (6)
  1. REQUIP [Suspect]
     Indication: RESTLESS LEGS SYNDROME
     Dosage: .5MGD PER DAY
     Route: 048
     Dates: start: 20071001, end: 20080401
  2. PROTONIX [Concomitant]
  3. FLECAINIDE ACETATE [Concomitant]
  4. ZONISAMIDE [Concomitant]
     Indication: DRUG USE FOR UNKNOWN INDICATION
     Dosage: 125MG AT NIGHT
     Route: 048
  5. RELPAX [Concomitant]
     Indication: MIGRAINE
     Dosage: 40MGD PER DAY
     Route: 048
     Dates: start: 20061001
  6. ESTRADIOL ACETATE [Concomitant]
     Indication: DRUG USE FOR UNKNOWN INDICATION
     Dates: start: 20070801

REACTIONS (3)
  - COMPULSIVE SHOPPING [None]
  - ECONOMIC PROBLEM [None]
  - OBSESSIVE-COMPULSIVE DISORDER [None]
